FAERS Safety Report 8998070 (Version 1)
Quarter: 2013Q1

REPORT INFORMATION
  Report Type: Report from Study
  Country: US (occurrence: US)
  Receive Date: 20130104
  Receipt Date: 20130104
  Transmission Date: 20140127
  Serious: Yes (Hospitalization, Other)
  Sender: FDA-Public Use
  Company Number: US-ABBOTT-12P-163-1027876-00

PATIENT
  Sex: Female
  Weight: 78.09 kg

DRUGS (8)
  1. HUMIRA [Suspect]
     Indication: RHEUMATOID ARTHRITIS
     Dates: start: 2010, end: 2010
  2. HUMIRA [Suspect]
     Indication: RHEUMATOID ARTHRITIS
     Dates: start: 2010
  3. ACTEMRA [Suspect]
     Indication: RHEUMATOID ARTHRITIS
     Dosage: 2 DOSES
     Dates: start: 2012, end: 201206
  4. PREDNISONE [Concomitant]
     Indication: RHEUMATOID ARTHRITIS
  5. DIOVAN [Concomitant]
     Indication: HYPERTENSION
  6. 2 UNNAMED MEDICATIONS (NON-ABBOTT) [Concomitant]
     Indication: HYPERTENSION
  7. PHENERGAN (NON-ABBOTT) [Concomitant]
     Indication: GASTRIC DISORDER
  8. PREVACID [Concomitant]
     Indication: GASTRIC DISORDER

REACTIONS (5)
  - Hand deformity [Not Recovered/Not Resolved]
  - Cyst [Not Recovered/Not Resolved]
  - Upper respiratory tract infection [Recovered/Resolved]
  - Panic attack [Not Recovered/Not Resolved]
  - Drug ineffective [Not Recovered/Not Resolved]
